FAERS Safety Report 25298788 (Version 3)
Quarter: 2025Q3

REPORT INFORMATION
  Report Type: Spontaneous
  Country: EU (occurrence: EU)
  Receive Date: 20250512
  Receipt Date: 20250701
  Transmission Date: 20251020
  Serious: Yes (Hospitalization, Other)
  Sender: AUROBINDO
  Company Number: EU-Merck Healthcare KGaA-2025019813

PATIENT
  Age: 84 Year
  Sex: Male

DRUGS (5)
  1. AMLODIPINE [Suspect]
     Active Substance: AMLODIPINE BESYLATE
     Indication: Hypertension
     Dosage: 5 MILLIGRAM, ONCE A DAY
     Route: 065
  2. BISOPROLOL [Suspect]
     Active Substance: BISOPROLOL
     Indication: Hypertension
     Dosage: 5 MILLIGRAM, ONCE A DAY
     Route: 065
  3. INDAPAMIDE [Suspect]
     Active Substance: INDAPAMIDE
     Indication: Hypertension
     Dosage: 1.25 MILLIGRAM, ONCE A DAY
     Route: 065
  4. PERINDOPRIL [Suspect]
     Active Substance: PERINDOPRIL
     Indication: Hypertension
     Dosage: 5 MILLIGRAM, ONCE A DAY
     Route: 065
  5. TORSEMIDE [Suspect]
     Active Substance: TORSEMIDE
     Indication: Hypertension
     Dosage: 20 MILLIGRAM, ONCE A DAY
     Route: 065

REACTIONS (11)
  - Fall [Recovered/Resolved]
  - Acute kidney injury [Unknown]
  - Hypotension [Unknown]
  - Dysarthria [Unknown]
  - Diarrhoea [Unknown]
  - Hallucination [Unknown]
  - Hypokalaemia [Recovered/Resolved]
  - Syncope [Recovered/Resolved]
  - Electrolyte imbalance [Recovered/Resolved]
  - Hyponatraemia [Recovered/Resolved]
  - Restlessness [Unknown]
